FAERS Safety Report 8332718-2 (Version None)
Quarter: 2012Q1

REPORT INFORMATION
  Report Type: 
  Country: None (occurrence: None)
  Receive Date: 20120327
  Receipt Date: 20100617
  Transmission Date: 20120608
  Serious: Yes (Other)
  Sender: FDA-Public Use
  Company Number: PHHY2010US04323

PATIENT
  Age: 52 Year
  Sex: Female
  Weight: 61.7 kg

DRUGS (8)
  1. GLEEVEC [Suspect]
     Indication: GASTROINTESTINAL STROMAL TUMOUR
     Dosage: 400 MG DAILY, ORAL, 800 MG, QD, ORAL
     Route: 048
     Dates: start: 20070604
  2. GLEEVEC [Suspect]
     Indication: NEOPLASM MALIGNANT
     Dosage: 400 MG DAILY, ORAL, 800 MG, QD, ORAL
     Route: 048
     Dates: start: 20070604
  3. GLEEVEC [Suspect]
     Indication: GASTROINTESTINAL STROMAL TUMOUR
     Dosage: 400 MG DAILY, ORAL, 800 MG, QD, ORAL
     Route: 048
     Dates: end: 20100329
  4. GLEEVEC [Suspect]
     Indication: NEOPLASM MALIGNANT
     Dosage: 400 MG DAILY, ORAL, 800 MG, QD, ORAL
     Route: 048
     Dates: end: 20100329
  5. ALDACTONE [Concomitant]
  6. HYDROCODONE BITARTRATE [Concomitant]
  7. LASIX [Concomitant]
  8. METHADONE HCL [Concomitant]

REACTIONS (3)
  - NEOPLASM MALIGNANT [None]
  - METASTASES TO PERITONEUM [None]
  - METASTASES TO LIVER [None]
